FAERS Safety Report 9552130 (Version 1)
Quarter: 2013Q3

REPORT INFORMATION
  Report Type: Spontaneous
  Country: US (occurrence: None)
  Receive Date: 20130923
  Receipt Date: 20130923
  Transmission Date: 20140515
  Serious: Yes (Other)
  Sender: FDA-Public Use
  Company Number: SYM-2013-10791

PATIENT
  Age: 57 Year
  Sex: Female

DRUGS (2)
  1. XENAZINE [Suspect]
     Route: 048
     Dates: start: 20111104
  2. TEGRETOL (CARBAMAZAEPINE) (CARBAMAZEPINE) [Concomitant]

REACTIONS (1)
  - Convulsion [None]
